FAERS Safety Report 8234064-4 (Version None)
Quarter: 2012Q1

REPORT INFORMATION
  Report Type: 
  Country: None (occurrence: None)
  Receive Date: 20120326
  Receipt Date: 20120326
  Transmission Date: 20120608
  Serious: Yes (Other)
  Sender: FDA-Public Use
  Company Number: None

PATIENT
  Age: 45 Year
  Sex: Female
  Weight: 53.523 kg

DRUGS (2)
  1. PANTOPRAZOLE [Suspect]
     Indication: GASTROOESOPHAGEAL REFLUX DISEASE
     Dosage: 40 MG
     Route: 048
     Dates: start: 20110820, end: 20110904
  2. PANTOPRAZOLE [Concomitant]
     Dates: start: 20120202, end: 20120225

REACTIONS (7)
  - BACK PAIN [None]
  - GAIT DISTURBANCE [None]
  - ASTHENIA [None]
  - NECK PAIN [None]
  - C-REACTIVE PROTEIN INCREASED [None]
  - ARTHRALGIA [None]
  - HYPERTONIA [None]
